FAERS Safety Report 22881270 (Version 2)
Quarter: 2024Q3

REPORT INFORMATION
  Report Type: Spontaneous
  Country: US (occurrence: US)
  Receive Date: 20230830
  Receipt Date: 20240826
  Transmission Date: 20241016
  Serious: No
  Sender: CIPLA
  Company Number: US-CIPLA LTD.-2023US04156

PATIENT

DRUGS (10)
  1. MELOXICAM [Suspect]
     Active Substance: MELOXICAM
     Indication: Myositis
     Dosage: 7.5 MILLIGRAM, QD
     Route: 048
     Dates: start: 20230715
  2. MELOXICAM [Suspect]
     Active Substance: MELOXICAM
     Indication: Muscle rupture
     Dosage: 7.5 MILLIGRAM, QD
     Route: 048
     Dates: start: 20230715
  3. MELOXICAM [Suspect]
     Active Substance: MELOXICAM
     Dosage: 7.5 MILLIGRAM, QD
     Route: 048
     Dates: start: 20230716, end: 20230716
  4. DICLOFENAC [Concomitant]
     Active Substance: DICLOFENAC
     Indication: Myalgia
     Dosage: UNK, BID (APPLIED ON HIP AREA)
     Route: 061
     Dates: start: 20230715
  5. DICLOFENAC [Concomitant]
     Active Substance: DICLOFENAC
     Dosage: UNK, QD (APPLIED ON HIP AREA)
     Route: 061
     Dates: start: 20230716, end: 20230716
  6. YUVAFEM [Concomitant]
     Active Substance: ESTRADIOL HEMIHYDRATE
     Indication: Myalgia
     Dosage: UNK, TWICE A WEEK
     Route: 065
     Dates: start: 20230715
  7. FOSAMAX [Concomitant]
     Active Substance: ALENDRONATE SODIUM
     Indication: Osteoporosis
     Dosage: UNK (70 MG /1 TABLET EVERY MONDAY)
     Route: 065
     Dates: start: 202212
  8. HYDROCORTISONE [Concomitant]
     Active Substance: HYDROCORTISONE\HYDROCORTISONE ACETATE
     Indication: Rash pruritic
     Dosage: UNK (TWICE PRN)
     Route: 065
     Dates: start: 20230717
  9. HYDROCORTISONE [Concomitant]
     Active Substance: HYDROCORTISONE\HYDROCORTISONE ACETATE
     Dosage: UNK, BID (TWICE ON NIGHT)
     Route: 065
     Dates: start: 20230717
  10. BENADRYL [Concomitant]
     Active Substance: DIPHENHYDRAMINE HYDROCHLORIDE
     Indication: Product used for unknown indication
     Dosage: UNK
     Route: 065

REACTIONS (4)
  - Inappropriate schedule of product administration [Unknown]
  - Petechiae [Not Recovered/Not Resolved]
  - Rash [Recovered/Resolved]
  - Pruritus [Not Recovered/Not Resolved]

NARRATIVE: CASE EVENT DATE: 20230716
